FAERS Safety Report 15812372 (Version 1)
Quarter: 2019Q1

REPORT INFORMATION
  Report Type: Spontaneous
  Country: HR (occurrence: HR)
  Receive Date: 20190111
  Receipt Date: 20190111
  Transmission Date: 20190417
  Serious: Yes (Other)
  Sender: FDA-Public Use
  Company Number: PHHY2019HR002993

PATIENT
  Age: 42 Year
  Sex: Female
  Weight: 70 kg

DRUGS (1)
  1. GILENYA [Suspect]
     Active Substance: FINGOLIMOD HYDROCHLORIDE
     Indication: RELAPSING-REMITTING MULTIPLE SCLEROSIS
     Dosage: 0.5 MG, UNK (2 DAY)
     Route: 048
     Dates: start: 20171205, end: 201810

REACTIONS (2)
  - Lymphopenia [Recovering/Resolving]
  - Depression suicidal [Recovering/Resolving]

NARRATIVE: CASE EVENT DATE: 20171220
